FAERS Safety Report 5935039-8 (Version None)
Quarter: 2008Q4

REPORT INFORMATION
  Report Type: 
  Country: None (occurrence: None)
  Receive Date: 20081028
  Receipt Date: 20081016
  Transmission Date: 20090506
  Serious: Yes (Death, Hospitalization, Other)
  Sender: FDA-Public Use
  Company Number: 2008-03886

PATIENT
  Age: 56 Year
  Sex: Male

DRUGS (9)
  1. VELCADE [Suspect]
     Indication: MULTIPLE MYELOMA
  2. DEXAMETHASONE TAB [Suspect]
     Indication: MULTIPLE MYELOMA
  3. CYCLOPHOSPHAMIDE [Suspect]
     Indication: MULTIPLE MYELOMA
  4. ETOPOSIDE [Suspect]
     Indication: MULTIPLE MYELOMA
  5. CISPLATIN [Suspect]
     Indication: MULTIPLE MYELOMA
  6. DOXORUBICIN HCL [Suspect]
     Indication: MULTIPLE MYELOMA
  7. CYTARABINE [Suspect]
     Indication: MULTIPLE MYELOMA
     Dosage: 50 MG
  8. MELPHALAN(MELPHALAN) [Suspect]
     Indication: MULTIPLE MYELOMA
     Dosage: 0.25 MG/KG
  9. VINCRISTINE [Suspect]
     Indication: MULTIPLE MYELOMA

REACTIONS (3)
  - DISEASE PROGRESSION [None]
  - MULTIPLE MYELOMA [None]
  - PARAPARESIS [None]
